FAERS Safety Report 11435269 (Version 1)
Quarter: 2015Q3

REPORT INFORMATION
  Report Type: Report from Study
  Country: US (occurrence: US)
  Receive Date: 20150831
  Receipt Date: 20150831
  Transmission Date: 20151125
  Serious: Yes (Death, Hospitalization)
  Sender: FDA-Public Use
  Company Number: US-ASTRAZENECA-2015SE83414

PATIENT
  Age: 52 Year
  Sex: Male
  Weight: 99.8 kg

DRUGS (6)
  1. LISINOPRIL. [Suspect]
     Active Substance: LISINOPRIL
     Route: 048
     Dates: start: 2014
  2. MULTIVITAMIN [Concomitant]
     Active Substance: VITAMINS
     Indication: PROPHYLAXIS
     Route: 048
     Dates: start: 2014
  3. ATORVASTATIN [Concomitant]
     Active Substance: ATORVASTATIN
     Route: 048
     Dates: start: 2014
  4. WARFARIN [Concomitant]
     Active Substance: WARFARIN
     Indication: ANTICOAGULANT THERAPY
     Dosage: 7.5 MG, ONCE DAILY TWO DAYS OF THE WEEK AND 5 MG BY MOUTH ONCE DAILY THE REST OF THE WEEK
     Route: 048
  5. SEROQUEL XR [Suspect]
     Active Substance: QUETIAPINE FUMARATE
     Indication: BIPOLAR DISORDER
     Route: 048
     Dates: start: 2007
  6. TAMSULOSIN [Concomitant]
     Active Substance: TAMSULOSIN
     Dates: start: 2014

REACTIONS (7)
  - Thrombosis [Unknown]
  - Dysphemia [Unknown]
  - Thrombosis [Unknown]
  - Pneumonia [Unknown]
  - Chronic kidney disease [Unknown]
  - Memory impairment [Unknown]
  - Death [Fatal]

NARRATIVE: CASE EVENT DATE: 2007
